FAERS Safety Report 24806342 (Version 1)
Quarter: 2025Q1

REPORT INFORMATION
  Report Type: Spontaneous
  Country: US (occurrence: US)
  Receive Date: 20250103
  Receipt Date: 20250103
  Transmission Date: 20250409
  Serious: No
  Sender: GENMAB
  Company Number: US-GENMAB-2024-03829

PATIENT

DRUGS (1)
  1. EPCORITAMAB [Suspect]
     Active Substance: EPCORITAMAB
     Indication: Product used for unknown indication
     Route: 065

REACTIONS (1)
  - Skin reaction [Unknown]
